FAERS Safety Report 5843253-5 (Version None)
Quarter: 2008Q3

REPORT INFORMATION
  Report Type: 
  Country: None (occurrence: None)
  Receive Date: 20080813
  Receipt Date: 20080806
  Transmission Date: 20090109
  Serious: Yes (Death, Hospitalization, Disabling)
  Sender: FDA-Public Use
  Company Number: PHHY2008BR14880

PATIENT
  Sex: Male
  Weight: 44 kg

DRUGS (83)
  1. SANDIMMUNE [Suspect]
     Indication: PROPHYLAXIS AGAINST GRAFT VERSUS HOST DISEASE
     Dosage: 120 MG
     Dates: start: 20070723, end: 20070730
  2. SANDIMMUNE [Suspect]
     Dosage: 180 MG
     Dates: start: 20070730
  3. SANDIMMUNE [Suspect]
     Dosage: 180 MG
     Dates: start: 20070731
  4. SANDIMMUNE [Suspect]
     Dosage: 180 MG
     Dates: start: 20070802
  5. SANDIMMUNE [Suspect]
     Dosage: 45 MG
     Dates: start: 20070802
  6. SANDIMMUNE [Suspect]
     Dosage: 225 MG
     Dates: start: 20070803, end: 20070806
  7. SANDIMMUNE [Suspect]
     Dosage: 270 MG
     Dates: start: 20070807, end: 20070813
  8. SANDIMMUNE [Suspect]
     Dosage: 200 MG
     Dates: start: 20070814, end: 20070820
  9. SANDIMMUNE [Suspect]
     Dosage: 300 MG
     Dates: start: 20070820
  10. SANDIMMUNE [Suspect]
     Dosage: 300 MG
     Dates: start: 20070823
  11. ZOFRAN [Concomitant]
     Dosage: 6 MG
     Dates: start: 20070720, end: 20070806
  12. ZOFRAN [Concomitant]
     Dosage: 8 MG
     Dates: start: 20070807, end: 20070822
  13. ZOFRAN [Concomitant]
     Dosage: 6 MG
     Dates: start: 20070822
  14. ZOFRAN [Concomitant]
     Dosage: 8 MG
     Dates: start: 20070823
  15. ZOFRAN [Concomitant]
     Dosage: 6 MG
     Dates: start: 20070823
  16. ZOFRAN [Concomitant]
     Dosage: 8 MG
     Dates: start: 20070824, end: 20070903
  17. ZOFRAN [Concomitant]
     Dosage: 6 MG
     Dates: start: 20070823
  18. ZOVIRAX [Concomitant]
     Dosage: 630 MG
     Dates: start: 20070723, end: 20070829
  19. ZOLTEC [Concomitant]
     Dosage: 120 MG
     Dates: start: 20070723, end: 20070825
  20. URSACOL [Concomitant]
     Dosage: 300 MG
     Dates: start: 20070719, end: 20070829
  21. URSACOL [Concomitant]
     Dosage: 300 MG
     Dates: start: 20070831, end: 20070903
  22. GRANULOKINE [Concomitant]
     Dosage: 300 MG
     Dates: start: 20070816, end: 20070820
  23. GRANULOKINE [Concomitant]
     Dosage: 300 MG
     Dates: start: 20070823
  24. GRANULOKINE [Concomitant]
     Dosage: 300 MG
     Dates: start: 20070825, end: 20070903
  25. CLARITHROMYCIN [Concomitant]
     Dosage: 300 MG
     Dates: start: 20070816, end: 20070820
  26. CLARITHROMYCIN [Concomitant]
     Dosage: 315 MG
     Dates: start: 20070821, end: 20070824
  27. OMEPRAZOLE [Concomitant]
     Dosage: 30 MG
     Dates: start: 20070809, end: 20070819
  28. OMEPRAZOLE [Concomitant]
     Dosage: 20 MG
     Dates: start: 20070820, end: 20070822
  29. OMEPRAZOLE [Concomitant]
     Dosage: 30 MG
     Dates: start: 20070823
  30. OMEPRAZOLE [Concomitant]
     Dosage: 40 MG
     Dates: start: 20070824, end: 20070826
  31. ALBENDAZOLE [Concomitant]
     Dosage: 400 MG
     Dates: start: 20070711, end: 20070713
  32. DIPYRONE [Concomitant]
     Dosage: 2 ML
     Dates: start: 20070711, end: 20070717
  33. BACTRIM [Concomitant]
     Dosage: 2 AMPOULES
     Dates: start: 20070711
  34. BACTRIM [Concomitant]
     Dosage: 2 AMPOULES
     Dates: start: 20070719, end: 20070722
  35. PLASIL [Concomitant]
     Dosage: 1 AMPOULE
     Dates: start: 20070711
  36. PLASIL [Concomitant]
     Dosage: 8 MG
     Dates: start: 20070809, end: 20070828
  37. CEFEPIME [Concomitant]
     Dosage: 2 G
     Dates: start: 20070711, end: 20070719
  38. CEFEPIME [Concomitant]
     Dosage: 2 G
     Dates: start: 20070727, end: 20070818
  39. VANCOMYCIN HCL [Concomitant]
     Dosage: 800 MG
     Dates: start: 20070711
  40. VANCOMYCIN HCL [Concomitant]
     Dosage: 400 MG
     Dates: start: 20070712, end: 20070714
  41. VANCOMYCIN HCL [Concomitant]
     Dosage: 400 MG
     Dates: start: 20070716, end: 20070718
  42. VANCOMYCIN HCL [Concomitant]
     Dosage: 400 MG
     Dates: start: 20070825, end: 20070903
  43. ANTAK [Concomitant]
     Dosage: 150 MG
     Dates: start: 20070712, end: 20070717
  44. RANITIDINE [Concomitant]
     Dosage: 150 MG
     Dates: start: 20070718, end: 20070719
  45. RANITIDINE [Concomitant]
     Dosage: 50 MG
     Dates: start: 20070719, end: 20070808
  46. CYCLOPHOSPHAMIDE [Concomitant]
     Dosage: 2000 MG
     Dates: start: 20070720, end: 20070723
  47. LASIX [Concomitant]
     Dosage: 10 MG
     Dates: start: 20070720, end: 20070725
  48. LASIX [Concomitant]
     Dosage: 10 MG
     Dates: start: 20070812
  49. LASIX [Concomitant]
     Dosage: 20 MG
     Dates: start: 20070817
  50. SOLU-MEDROL [Concomitant]
     Dosage: 80 MG
     Dates: start: 20070720, end: 20070724
  51. ATG                                     /BEL/ [Concomitant]
     Dosage: 80 MG
     Dates: start: 20070720, end: 20070724
  52. PROMETHAZINE [Concomitant]
     Dosage: 12.5 MG
     Dates: start: 20070720, end: 20070724
  53. DIGESAN [Concomitant]
     Dosage: 20 MG
     Dates: start: 20070721
  54. DIGESAN [Concomitant]
     Dosage: 10 MG
     Dates: start: 20070721
  55. DIGESAN [Concomitant]
     Dosage: 10 MG
     Dates: start: 20070722, end: 20070808
  56. AMLODIPINE [Concomitant]
     Dosage: 5 MG
     Dates: start: 20070725
  57. AMLODIPINE [Concomitant]
     Dosage: 2.5 MG
     Dates: start: 20070728, end: 20070821
  58. METHOTREXATE [Concomitant]
     Dosage: 20 MG
     Dates: start: 20070726
  59. METHOTREXATE [Concomitant]
     Dosage: 15 MG
     Dates: start: 20070728
  60. METHOTREXATE [Concomitant]
     Dosage: 15 MG
     Dates: start: 20070731
  61. METHOTREXATE [Concomitant]
     Dosage: 15 MG
     Dates: start: 20070805
  62. LEUCOVORIN CALCIUM [Concomitant]
     Dosage: 20 MG
     Dates: start: 20070727
  63. LEUCOVORIN CALCIUM [Concomitant]
     Dosage: 20 MG
     Dates: start: 20070728
  64. LEUCOVORIN CALCIUM [Concomitant]
     Dosage: 15 MG
     Dates: start: 20070729, end: 20070730
  65. LEUCOVORIN CALCIUM [Concomitant]
     Dosage: 15 MG
     Dates: start: 20070801, end: 20070802
  66. LEUCOVORIN CALCIUM [Concomitant]
     Dosage: 15 MG
     Dates: start: 20070806, end: 20070807
  67. PARACETAMOL [Concomitant]
     Dosage: 500 MG
     Dates: start: 20070728, end: 20070729
  68. MEROPENEM [Concomitant]
     Dosage: 80 MG
     Dates: start: 20070818, end: 20070821
  69. MEROPENEM [Concomitant]
     Dosage: 800 MG
     Dates: start: 20070823, end: 20070903
  70. LORATADINE [Concomitant]
     Dosage: 10 ML
     Dates: start: 20070823, end: 20070825
  71. TACROLIMUS [Concomitant]
     Dosage: 12 MG
     Dates: start: 20070824, end: 20070829
  72. SERTRALINE [Concomitant]
     Dosage: 25 MG
     Dates: start: 20070827, end: 20070828
  73. INSULIN [Concomitant]
     Dosage: 4 UNITS
     Dates: start: 20070829
  74. DORMONID [Concomitant]
     Dosage: 5 MG
     Dates: start: 20070829
  75. KETAMINE HCL [Concomitant]
     Dosage: 10 MG
     Dates: start: 20070829
  76. DOPAMINE HCL [Concomitant]
     Dosage: 240 MG
     Dates: start: 20070829
  77. MIDAZOLAM HCL [Concomitant]
     Dosage: 50 MG
     Dates: start: 20070829
  78. AMIKACIN [Concomitant]
     Dosage: 600 MG
     Dates: start: 20070829, end: 20070903
  79. GANCICLOVIR [Concomitant]
     Dosage: 200 MG
     Dates: start: 20070830, end: 20070903
  80. NORADRENALINE [Concomitant]
     Dosage: 4 ML
     Dates: start: 20070830, end: 20070902
  81. NORADRENALINE [Concomitant]
     Dosage: 7.7 ML
     Dates: start: 20070903
  82. CELLCEPT [Concomitant]
     Dosage: 500 MG
     Dates: start: 20070902, end: 20070903
  83. PHENYTOIN [Concomitant]
     Dosage: 100 MG
     Dates: start: 20070902, end: 20070903

REACTIONS (22)
  - BRADYCARDIA [None]
  - CARDIO-RESPIRATORY ARREST [None]
  - COMA [None]
  - COUGH [None]
  - DIARRHOEA [None]
  - DYSPNOEA [None]
  - EPISTAXIS [None]
  - HEADACHE [None]
  - HYPOTENSION [None]
  - MECHANICAL VENTILATION [None]
  - MYDRIASIS [None]
  - NAUSEA [None]
  - NEUROLOGICAL SYMPTOM [None]
  - OXYGEN SATURATION DECREASED [None]
  - PAIN [None]
  - RESPIRATORY DEPRESSION [None]
  - SOMNOLENCE [None]
  - TACHYCARDIA [None]
  - TREMOR [None]
  - VISION BLURRED [None]
  - VISUAL IMPAIRMENT [None]
  - VOMITING [None]
